FAERS Safety Report 7455833-4 (Version None)
Quarter: 2011Q2

REPORT INFORMATION
  Report Type: 
  Country: None (occurrence: None)
  Receive Date: 20110503
  Receipt Date: 20110429
  Transmission Date: 20111010
  Serious: Yes (Death)
  Sender: FDA-Public Use
  Company Number: PHHY2011US31141

PATIENT
  Sex: Female

DRUGS (2)
  1. SUTENT [Concomitant]
     Dosage: 50 MG, DAILY FOR 4 WEEEKS EVERY 6 WEEK
     Dates: start: 20110315
  2. GLEEVEC [Suspect]
     Indication: MALIGNANT SOFT TISSUE NEOPLASM
     Dosage: 400 MG, DAILY
     Route: 048
     Dates: start: 20081113

REACTIONS (1)
  - DEATH [None]
